FAERS Safety Report 6711252-7 (Version None)
Quarter: 2010Q2

REPORT INFORMATION
  Report Type: 
  Country: None (occurrence: None)
  Receive Date: 20100505
  Receipt Date: 20100423
  Transmission Date: 20101027
  Serious: Yes (Other)
  Sender: FDA-Public Use
  Company Number: US-PFIZER INC-2008063928

PATIENT
  Age: 86 Year
  Sex: Female

DRUGS (3)
  1. SUNITINIB MALATE [Suspect]
     Indication: BREAST CANCER
     Dosage: 25 MG, UNK
     Dates: start: 20071026, end: 20080226
  2. CYCLOPHOSPHAMIDE [Suspect]
     Indication: BREAST CANCER
     Dosage: UNK
     Dates: start: 20071026, end: 20080226
  3. METHOTREXATE SODIUM [Suspect]
     Indication: BREAST CANCER
     Dosage: UNK
     Dates: start: 20071026, end: 20080226

REACTIONS (1)
  - SUBDURAL HAEMATOMA [None]
